FAERS Safety Report 7953439-1 (Version None)
Quarter: 2011Q4

REPORT INFORMATION
  Report Type: 
  Country: None (occurrence: None)
  Receive Date: 20111202
  Receipt Date: 20111129
  Transmission Date: 20120403
  Serious: Yes (Other)
  Sender: FDA-Public Use
  Company Number: US-PFIZER INC-2011291796

PATIENT
  Age: 82 Year
  Sex: Female

DRUGS (2)
  1. LYRICA [Suspect]
     Indication: POST HERPETIC NEURALGIA
     Dosage: 150 MG, DAILY
     Route: 048
     Dates: start: 20111128
  2. LYRICA [Suspect]
     Indication: HERPES ZOSTER
     Dosage: 75 MG, DAILY
     Route: 048
     Dates: start: 20111117, end: 20111127

REACTIONS (2)
  - INCORRECT DOSE ADMINISTERED [None]
  - DIPLOPIA [None]
